FAERS Safety Report 4872101-5 (Version None)
Quarter: 2005Q4

REPORT INFORMATION
  Report Type: 
  Country: None (occurrence: None)
  Receive Date: 20051230
  Receipt Date: 20051221
  Transmission Date: 20060501
  Serious: Yes (Hospitalization)
  Sender: FDA-Public Use
  Company Number: DE-2005-014522

PATIENT
  Age: 28 Year
  Sex: Female
  Weight: 48.5 kg

DRUGS (2)
  1. PETIBELLE 30 (21) (ETHINYLESTRADIOL, DROSPIRENONE) FILM TABLET [Suspect]
     Indication: ORAL CONTRACEPTION
     Dosage: 1 TAB(S), 21D/28D, ORAL
     Route: 048
     Dates: start: 20001205, end: 20010301
  2. INSIDON  CIBA-GEIGY (OPIPRAMOL HYDROCHLORIDE) [Concomitant]

REACTIONS (9)
  - BLOOD PRESSURE DECREASED [None]
  - BLOOD THYROID STIMULATING HORMONE DECREASED [None]
  - DIZZINESS [None]
  - HEADACHE [None]
  - MENTAL DISORDER [None]
  - NAUSEA [None]
  - NERVOUS SYSTEM DISORDER [None]
  - SYNCOPE [None]
  - THYROID DISORDER [None]
